FAERS Safety Report 5695116-6 (Version None)
Quarter: 2008Q2

REPORT INFORMATION
  Report Type: 
  Country: None (occurrence: None)
  Receive Date: 20080404
  Receipt Date: 20080323
  Transmission Date: 20081010
  Serious: Yes (Other)
  Sender: FDA-Public Use
  Company Number: US-PFIZER INC-2008016846

PATIENT
  Sex: Female
  Weight: 86.4 kg

DRUGS (14)
  1. CHANTIX [Suspect]
     Indication: SMOKING CESSATION THERAPY
  2. HALDOL [Concomitant]
     Route: 048
  3. HALDOL [Concomitant]
  4. ZYPREXA [Concomitant]
  5. MIRTAZAPINE [Concomitant]
  6. ZOCOR [Concomitant]
  7. COGENTIN [Concomitant]
  8. HYDROXYZINE [Concomitant]
  9. CLONAZEPAM [Concomitant]
  10. PRILOSEC [Concomitant]
  11. DARVOCET [Concomitant]
  12. MOTRIN [Concomitant]
  13. POTASSIUM CHLORIDE [Concomitant]
  14. TOPROL-XL [Concomitant]

REACTIONS (15)
  - BACK PAIN [None]
  - BLOOD PRESSURE INCREASED [None]
  - BURNING SENSATION [None]
  - DIARRHOEA [None]
  - DRUG INEFFECTIVE [None]
  - DYSPNOEA [None]
  - FATIGUE [None]
  - HEADACHE [None]
  - INFLUENZA LIKE ILLNESS [None]
  - INSOMNIA [None]
  - IRRITABILITY [None]
  - MEMORY IMPAIRMENT [None]
  - NAUSEA [None]
  - TENSION [None]
  - WEIGHT INCREASED [None]
